FAERS Safety Report 8831103 (Version 1)
Quarter: 2012Q4

REPORT INFORMATION
  Report Type: 
  Country: MX (occurrence: MX)
  Receive Date: 20121009
  Receipt Date: 20121009
  Transmission Date: 20130627
  Serious: Yes (Other)
  Sender: FDA-Public Use
  Company Number: PHHY2012MX088262

PATIENT
  Sex: Female

DRUGS (9)
  1. TRILEPTAL [Suspect]
     Indication: EPILEPSY
     Dosage: 1.5 DF, (300 mg) per day
     Route: 048
  2. GAVINDO [Concomitant]
     Indication: NEUROPATHY PERIPHERAL
     Dosage: 2 DF, per day
     Dates: start: 2010
  3. JANUMET [Concomitant]
     Indication: DIABETES MELLITUS
     Dosage: 1 DF, per day
     Dates: start: 2005
  4. ENALAPRIL [Concomitant]
     Indication: HYPERTENSION
     Dosage: 1 DF, per day
     Dates: start: 2010
  5. HYZAAR [Concomitant]
     Indication: SWELLING
     Dosage: 1 DF, per day
     Dates: start: 2010
  6. DIFENIDOL [Concomitant]
     Indication: NAUSEA
     Dosage: 2 DF, per day
     Dates: start: 2011
  7. LASILACTON [Concomitant]
     Indication: SWELLING
     Dosage: 1 DF, per day
     Dates: start: 2009
  8. FOLIC ACID [Concomitant]
     Indication: RENAL DISORDER
     Dosage: 1 DF, per day
     Dates: start: 201209
  9. DICAL [Concomitant]
     Indication: RENAL DISORDER
     Dosage: 1 DF, per day
     Dates: start: 201208

REACTIONS (3)
  - Neuropathy peripheral [Not Recovered/Not Resolved]
  - Hypoaesthesia [Not Recovered/Not Resolved]
  - Wrong technique in drug usage process [Unknown]
